FAERS Safety Report 9380391 (Version 1)
Quarter: 2013Q2

REPORT INFORMATION
  Report Type: Spontaneous
  Country: US (occurrence: None)
  Receive Date: 20130628
  Receipt Date: 20130628
  Transmission Date: 20140414
  Serious: Yes (Death, Hospitalization)
  Sender: FDA-Public Use
  Company Number: SYM-2013-05188

PATIENT
  Age: 20 Year
  Sex: Female
  Weight: 42.72 kg

DRUGS (8)
  1. DIASTAT [Suspect]
     Indication: PRODUCT USED FOR UNKNOWN INDICATION
  2. ATIVAN [Suspect]
     Indication: PRODUCT USED FOR UNKNOWN INDICATION
  3. MOGADON (NITRAZEPAM) (NITRAZEPAM) [Concomitant]
  4. DEPAKOTE (VALPROATE SEMISODIUM) (VALPROATE SEMSODIUM) [Concomitant]
  5. PHENOBARBITAL (PHENOBARBITAL) (PHENOBARBITAL) [Concomitant]
  6. CARNITOR (LEVOCARITINE) (LEVOCARITINE) [Concomitant]
  7. CALCIUM CARBONATE (CALCIUM CARBONATE) (CALCIUM CARBONATE) [Concomitant]
  8. VITAMIN D (ERGOCACLICFEROL (ERGOCALCIFEROL) [Concomitant]

REACTIONS (11)
  - Paradoxical drug reaction [None]
  - Treatment failure [None]
  - Convulsion [None]
  - Condition aggravated [None]
  - Status epilepticus [None]
  - Respiratory failure [None]
  - Brain injury [None]
  - Loss of consciousness [None]
  - Drug dose omission [None]
  - Central nervous system infection [None]
  - White blood cell count increased [None]
